FAERS Safety Report 14534480 (Version 1)
Quarter: 2018Q1

REPORT INFORMATION
  Report Type: Spontaneous
  Country: US (occurrence: US)
  Receive Date: 20180214
  Receipt Date: 20180214
  Transmission Date: 20180509
  Serious: No
  Sender: FDA-Public Use
  Company Number: None

PATIENT
  Age: 36 Year
  Sex: Female
  Weight: 65.77 kg

DRUGS (2)
  1. PARAGARD T 380A [Suspect]
     Active Substance: COPPER
  2. MULTI-VITAMINS [Concomitant]

REACTIONS (2)
  - Device expulsion [None]
  - Pregnancy [None]

NARRATIVE: CASE EVENT DATE: 20170918
